FAERS Safety Report 8969691 (Version 1)
Quarter: 2012Q4

REPORT INFORMATION
  Report Type: 
  Country: NL (occurrence: NL)
  Receive Date: 20121217
  Receipt Date: 20121217
  Transmission Date: 20130627
  Serious: Yes (Other)
  Sender: FDA-Public Use
  Company Number: NL-009507513-1212NLD002232

PATIENT
  Age: 59 Year
  Sex: Female

DRUGS (2)
  1. TEMOZOLOMIDE [Suspect]
     Indication: METASTASES TO CENTRAL NERVOUS SYSTEM
     Dosage: 200 mg/m2, for 5 days on a 28-day cycle
     Route: 048
     Dates: start: 200810
  2. TEMOZOLOMIDE [Suspect]
     Dosage: 200 mg/m2, for 5 days on a 28-day cycle
     Route: 048
     Dates: start: 200605, end: 200807

REACTIONS (2)
  - CD4 lymphocytes decreased [Unknown]
  - Lymphopenia [Unknown]
